FAERS Safety Report 8614063-0 (Version None)
Quarter: 2012Q3

REPORT INFORMATION
  Report Type: 
  Country: None (occurrence: None)
  Receive Date: 20120823
  Receipt Date: 20120810
  Transmission Date: 20120928
  Serious: Yes (Life-Threatening, Hospitalization, Other)
  Sender: FDA-Public Use
  Company Number: JP-009507513-2012SP019053

PATIENT

DRUGS (15)
  1. REBETOL [Suspect]
     Dosage: 400 MG, QD
     Route: 048
     Dates: start: 20120314, end: 20120327
  2. PEGINTERFERON ALFA-2B [Suspect]
     Indication: HEPATITIS C
     Dosage: 1.5 MICROGRAM PER KILOGRAM, QW
     Route: 058
     Dates: start: 20120207, end: 20120417
  3. REBETOL [Suspect]
     Indication: HEPATITIS C
     Dosage: 600 MG, QD
     Route: 048
     Dates: start: 20120207, end: 20120313
  4. LICKLE [Suspect]
     Route: 048
  5. ALDACTONE [Suspect]
     Route: 048
  6. LEDOLPER [Suspect]
     Indication: PROPHYLAXIS
     Dosage: 1 TABLET PER DAY , AS NEEDED
     Route: 048
     Dates: start: 20120207
  7. TELAVIC [Suspect]
     Indication: HEPATITIS C
     Dosage: 2250 MG, QD
     Route: 048
     Dates: start: 20120207, end: 20120417
  8. ACETAMINOPHEN [Concomitant]
     Indication: PROPHYLAXIS
     Dosage: 2 TABLET  PER DAY AS NEEDED
     Route: 048
     Dates: start: 20120207
  9. MOTILIUM [Concomitant]
     Dosage: 1 TABLET/DAY AS NEEDED
     Route: 048
     Dates: start: 20120319
  10. RABEPRAZOLE SODIUM [Concomitant]
     Indication: PROPHYLAXIS
     Dosage: 10 MG, QD
     Route: 048
     Dates: start: 20120525
  11. AMLODIPINE BESYLATE [Suspect]
     Route: 048
  12. GASMOTIN [Concomitant]
     Dosage: 3 DF, QD
     Route: 048
     Dates: start: 20120319
  13. REBETOL [Suspect]
     Dosage: 200 MG, QD
     Route: 048
     Dates: start: 20120328, end: 20120419
  14. TELAVIC [Suspect]
     Dosage: 1500 MG, QD
     Route: 048
     Dates: start: 20120418, end: 20120419
  15. LASIX [Suspect]
     Route: 048

REACTIONS (3)
  - SKIN DISORDER [None]
  - IDIOPATHIC THROMBOCYTOPENIC PURPURA [None]
  - MALAISE [None]
